FAERS Safety Report 8802637 (Version 1)
Quarter: 2012Q4

REPORT INFORMATION
  Report Type: 
  Country: US (occurrence: US)
  Receive Date: 20120921
  Receipt Date: 20120921
  Transmission Date: 20130627
  Serious: Yes (Other)
  Sender: FDA-Public Use
  Company Number: US-TEVA-359722USA

PATIENT
  Sex: Male
  Weight: 72.64 kg

DRUGS (7)
  1. NUVIGIL [Suspect]
     Indication: HYPERSOMNIA
     Dosage: 1/2 tablet (75 mg) QAM
     Route: 048
     Dates: start: 201208
  2. NUVIGIL [Suspect]
     Route: 048
     Dates: start: 201110, end: 201110
  3. LAMICTAL [Concomitant]
     Indication: BIPOLAR II DISORDER
     Dosage: 200 Milligram Daily;
     Route: 048
  4. LEXAPRO [Concomitant]
     Dosage: 20-30 mg QD
     Route: 048
  5. LISINOPRIL [Concomitant]
     Indication: HYPERTENSION
     Dosage: 10 Milligram Daily;
     Route: 048
  6. OMEGA [Concomitant]
     Indication: SUPPLEMENTATION THERAPY
     Dosage: 1000 Milligram Daily;
     Route: 048
  7. ATIVAN [Concomitant]
     Indication: ANXIETY
     Dosage: PRN
     Route: 048

REACTIONS (8)
  - Suicidal ideation [Not Recovered/Not Resolved]
  - Anxiety [Not Recovered/Not Resolved]
  - Nausea [Not Recovered/Not Resolved]
  - Decreased appetite [Not Recovered/Not Resolved]
  - Drug ineffective for unapproved indication [Not Recovered/Not Resolved]
  - Hypersomnia [Not Recovered/Not Resolved]
  - Dry mouth [Recovered/Resolved]
  - Off label use [Unknown]
